FAERS Safety Report 5764844-6 (Version None)
Quarter: 2008Q2

REPORT INFORMATION
  Report Type: 
  Country: None (occurrence: None)
  Receive Date: 20080602
  Receipt Date: 20070417
  Transmission Date: 20081010
  Serious: Yes (Disabling)
  Sender: FDA-Public Use
  Company Number: WAES 0704USA03673

PATIENT
  Age: 60 Year
  Sex: Male

DRUGS (2)
  1. EMEND [Suspect]
     Indication: PROPHYLACTIC CHEMOTHERAPY
     Dosage: 125 MG/1X/PO
     Route: 047
     Dates: start: 20070416, end: 20070417
  2. ANTINEOPLASTIC (UNSPECIFIED) [Concomitant]

REACTIONS (1)
  - HYPOTENSION [None]
